FAERS Safety Report 4967078-8 (Version None)
Quarter: 2006Q2

REPORT INFORMATION
  Report Type: 
  Country: None (occurrence: None)
  Receive Date: 20060410
  Receipt Date: 20060405
  Transmission Date: 20061013
  Serious: Yes (Hospitalization)
  Sender: FDA-Public Use
  Company Number: FR-SP-2006-00793

PATIENT
  Age: 77 Year
  Sex: Male

DRUGS (1)
  1. IMMUCYST [Suspect]
     Indication: BLADDER CANCER
     Route: 043
     Dates: start: 20050818, end: 20050929

REACTIONS (8)
  - BALANITIS [None]
  - BOVINE TUBERCULOSIS [None]
  - GENITAL LESION [None]
  - GIANT CELL EPULIS [None]
  - GRANULOMA SKIN [None]
  - NECROSIS [None]
  - SKIN NECROSIS [None]
  - TUBERCULOSIS [None]
